FAERS Safety Report 19678072 (Version 3)
Quarter: 2021Q3

REPORT INFORMATION
  Report Type: Spontaneous
  Country: CH (occurrence: CH)
  Receive Date: 20210809
  Receipt Date: 20210903
  Transmission Date: 20211014
  Serious: Yes (Hospitalization, Disabling, Other)
  Sender: FDA-Public Use
  Company Number: CH-009507513-2108CHE001881

PATIENT
  Age: 70 Year
  Sex: Female
  Weight: 80 kg

DRUGS (7)
  1. AMLODIPINE;OLMESARTAN [Concomitant]
     Active Substance: AMLODIPINE\OLMESARTAN
     Dosage: TOTAL DAILY DOSE 40/10MG
     Route: 048
  2. KEYTRUDA [Suspect]
     Active Substance: PEMBROLIZUMAB
     Indication: RENAL CANCER
     Dosage: 3?WEEKLY (100MG/4ML)
     Dates: start: 20201010, end: 20210527
  3. COMIRNATY [Suspect]
     Active Substance: TOZINAMERAN
     Dosage: 0.3 MILLILITER
     Route: 030
  4. AXITINIB [Concomitant]
     Active Substance: AXITINIB
     Dosage: 10 MILLIGRAM
     Route: 048
  5. INLYTA [Suspect]
     Active Substance: AXITINIB
     Dosage: UNK
  6. ZOLPIDEM [Concomitant]
     Active Substance: ZOLPIDEM TARTRATE
     Dosage: 10 MILLIGRAM
     Route: 048
  7. COMIRNATY [Suspect]
     Active Substance: TOZINAMERAN
     Indication: PROPHYLAXIS
     Dosage: 0.3 MILLILITER
     Route: 030

REACTIONS (29)
  - Incontinence [Unknown]
  - Hypertensive heart disease [Unknown]
  - Pulmonary arterial pressure increased [Unknown]
  - Mental disorder [Unknown]
  - Diarrhoea [Unknown]
  - Somatosensory evoked potentials abnormal [Unknown]
  - Inappropriate antidiuretic hormone secretion [Unknown]
  - Hypochloraemia [Unknown]
  - Fall [Unknown]
  - Chorea [Recovering/Resolving]
  - Paresis [Not Recovered/Not Resolved]
  - Haematuria [Recovered/Resolved]
  - Bladder irritation [Unknown]
  - Eye disorder [Unknown]
  - Gait disturbance [Unknown]
  - Leukoencephalopathy [Unknown]
  - Pollakiuria [Unknown]
  - Visual impairment [Unknown]
  - Encephalitis autoimmune [Unknown]
  - Spinal disorder [Unknown]
  - Hypertension [Unknown]
  - Cataract operation [Unknown]
  - Intraocular pressure increased [Unknown]
  - Asthenia [Unknown]
  - CSF protein increased [Unknown]
  - Fatigue [Not Recovered/Not Resolved]
  - Immune-mediated enterocolitis [Unknown]
  - Atonic urinary bladder [Unknown]
  - Urge incontinence [Unknown]

NARRATIVE: CASE EVENT DATE: 2020
